FAERS Safety Report 9846965 (Version 1)
Quarter: 2013Q4

REPORT INFORMATION
  Report Type: Spontaneous
  Country: US (occurrence: None)
  Receive Date: 20131219
  Receipt Date: 20131219
  Transmission Date: 20140711
  Serious: Yes (Other)
  Sender: FDA-Public Use
  Company Number: 163-20785-13094033

PATIENT
  Age: 68 Year
  Sex: Female

DRUGS (34)
  1. THALOMID (THALIDOMIDE) (100 MILLIGRAM, CAPSULES) [Suspect]
     Indication: PLASMA CELL MYELOMA
     Dosage: 100 MG, 1 IN 1 D, PO
     Route: 048
     Dates: start: 20130724, end: 20130923
  2. ADVAIR DISKUS (SERTIDE MITE) (UNKNOWN) [Concomitant]
  3. ALBUTEROL (SALBUTAMOL) (UNKNOWN) [Concomitant]
  4. AMIODARONE (AMIODARONE) (UNKNOWN) [Concomitant]
  5. CALCIUM (CALCIUM) (TABLETS) [Concomitant]
  6. COUMADIN (WARFARIN SODIUM) (TABLETS) [Concomitant]
  7. CYANOCOBALAMIN (CYANOCOBALAMIN) (UNKNOWN) [Concomitant]
  8. FLUDROCERT (OTHER THERAPEUTIC PRODUCTS) (TABLETS)? [Concomitant]
  9. GABAPENTIN (GABAPENTIN) (CAPSULES) [Concomitant]
  10. HYDRALAZINE HYDROCHLORIDE [Concomitant]
  11. LOMOTIL (LOMOTIL) (UNKNOWN) [Concomitant]
  12. METOPROLOL (METOPROLOL) (UNKNOWN) [Concomitant]
  13. MULTIPLE VITAMIN (MULITPLE VITAMINS) (TABLETS) [Concomitant]
  14. NITROFURANTOIN MACROCRYSTAL (NITROFURANTOIN) (CAPSULES)? [Concomitant]
  15. PAMELOR (NORTRIPTYLINE HYDROCHLORIDE) (CAPSULES)? [Concomitant]
  16. PERCOCET (OXYCOCET) (TABLETS) [Concomitant]
  17. POTASSIUM (POTASSIUM) (TABLETS) [Concomitant]
  18. PREMARIN (ESTROGENS CONJUGATED) (UNKNOWN) [Concomitant]
  19. PROBIOTIC (BIFIDOBACTERIUM LACTIS) (CAPSULES) [Concomitant]
  20. ROBAXIN (METHHOCARBAMOL) (TABLETS) [Concomitant]
  21. SODIUM BICARBONATE (SODIUM BICARBONATE) (TABLETS) [Concomitant]
  22. SPIRIVA HANDIHALER (TIOTROPIUM BROMIDE) (INHALANT) [Concomitant]
  23. SYNTHROID (LEVOTHYROXINE SODIUM) (TABLETS) [Concomitant]
  24. TYLENOL (PARACETAMOL) (UNKNOWN) [Concomitant]
  25. VELCADE (BORTEZOMIB) (UNKNOWN) [Concomitant]
  26. VITAMIN C (ASCORBIC ACID) (CAPSULES) [Concomitant]
  27. VITAMIN D (ERGOCALCIFEROL) (CAPSULES) [Concomitant]
  28. VITAMIN E (TOCOPHEROL) (TABLETS) [Concomitant]
  29. ZOFRAN (ONDANSETRON HYDROCHLORIDE) [Concomitant]
  30. ZOMETA (ZOLEDRONIC ACID) (UNKNOWN) [Concomitant]
  31. ACYCLOVIR (ACICLOVIR) (TABLETS) [Concomitant]
  32. PROTONIX (PANTOPRAZOLE) (TABLETS) [Concomitant]
  33. DEXAMETHASONE (DEXAMETHASONE) (TABLETS)? [Concomitant]
  34. HIZENTRA (IMMUNOGLOBULIN G HUMAN) (UNKNOWN) [Concomitant]

REACTIONS (1)
  - Cushingoid [None]
